FAERS Safety Report 7365418-6 (Version None)
Quarter: 2011Q1

REPORT INFORMATION
  Report Type: 
  Country: None (occurrence: None)
  Receive Date: 20110315
  Receipt Date: 20110315
  Transmission Date: 20110831
  Serious: Yes (Other)
  Sender: FDA-Public Use
  Company Number: None

PATIENT
  Sex: Female
  Weight: 68.0396 kg

DRUGS (2)
  1. RANITIDINE [Suspect]
     Indication: GASTROOESOPHAGEAL REFLUX DISEASE
     Dosage: ONE TABLE AT MEAL
     Dates: start: 20110122
  2. OMEPRAZOLE [Suspect]
     Indication: GASTROOESOPHAGEAL REFLUX DISEASE
     Dosage: EVERY 12 HRS
     Dates: start: 20110121

REACTIONS (11)
  - PRURITUS [None]
  - DIARRHOEA [None]
  - RESPIRATORY DISORDER [None]
  - PYREXIA [None]
  - HEART RATE IRREGULAR [None]
  - HEART RATE DECREASED [None]
  - DIZZINESS [None]
  - HAEMORRHAGE [None]
  - CONSTIPATION [None]
  - OROPHARYNGEAL PAIN [None]
  - CHILLS [None]
